FAERS Safety Report 5250331-0 (Version None)
Quarter: 2007Q1

REPORT INFORMATION
  Report Type: 
  Country: None (occurrence: None)
  Receive Date: 20070228
  Receipt Date: 20060329
  Transmission Date: 20070707
  Serious: No
  Sender: FDA-Public Use
  Company Number: US-GLAXOSMITHKLINE-A0599517A

PATIENT
  Age: 15 Year
  Sex: Male

DRUGS (3)
  1. LAMICTAL [Suspect]
     Indication: BIPOLAR DISORDER
     Dosage: 10MG PER DAY
     Route: 048
     Dates: start: 20060328
  2. LEXAPRO [Suspect]
     Indication: OBSESSIVE-COMPULSIVE DISORDER
     Route: 048
     Dates: start: 20060328
  3. NO CONCURRENT MEDICATION [Concomitant]

REACTIONS (1)
  - MUSCULAR WEAKNESS [None]
